FAERS Safety Report 19109862 (Version 4)
Quarter: 2021Q3

REPORT INFORMATION
  Report Type: Spontaneous
  Country: US (occurrence: US)
  Receive Date: 20210408
  Receipt Date: 20210824
  Transmission Date: 20211014
  Serious: No
  Sender: FDA-Public Use
  Company Number: US-LUPIN PHARMACEUTICALS INC.-2021-00058

PATIENT
  Sex: Male

DRUGS (3)
  1. SIMVASTATIN. [Concomitant]
     Active Substance: SIMVASTATIN
     Indication: BLOOD CHOLESTEROL INCREASED
     Dosage: 40 MILLIGRAM
     Route: 065
  2. TESTOSTERONE GEL 1.62% [Suspect]
     Active Substance: TESTOSTERONE
     Indication: BLOOD TESTOSTERONE ABNORMAL
     Dosage: UNK
     Route: 065
  3. TESTOSTERONE GEL 1.62% [Suspect]
     Active Substance: TESTOSTERONE
     Dosage: UNK UNK, QD,  STARTED ON SEP?2019 OR OCT?2019, 4PUMPS DAILY, 2 TO LEFT ARM AND 2 TO RIGHT ARM
     Route: 065
     Dates: start: 2019

REACTIONS (4)
  - Product substitution issue [Unknown]
  - Blood testosterone decreased [Unknown]
  - Fatigue [Unknown]
  - Drug ineffective [Unknown]
